FAERS Safety Report 9300802 (Version 4)
Quarter: 2014Q1

REPORT INFORMATION
  Report Type: Report from Study
  Country: CA (occurrence: CA)
  Receive Date: 20130521
  Receipt Date: 20140221
  Transmission Date: 20141002
  Serious: Yes (Other)
  Sender: FDA-Public Use
  Company Number: CA-JNJFOC-20130511165

PATIENT
  Age: 54 Year
  Sex: Female
  Weight: 69.8 kg

DRUGS (4)
  1. REMICADE [Suspect]
     Indication: RHEUMATOID ARTHRITIS
     Route: 042
     Dates: start: 20090408
  2. REMICADE [Suspect]
     Indication: PSORIASIS
     Route: 042
     Dates: start: 20090408
  3. PLAQUENIL [Suspect]
     Indication: RHEUMATOID ARTHRITIS
     Route: 048
     Dates: end: 20130722
  4. DEMEROL [Concomitant]
     Indication: PAIN
     Dosage: DEMEROL FOR 2 DAYS, REDUCING DOSE 2 TIMES PER DAY DESPITE THE FACT THAT THE PAIN WAS STILL PRESENT
     Route: 065

REACTIONS (3)
  - Retinal detachment [Recovering/Resolving]
  - Headache [Recovering/Resolving]
  - Intervertebral disc protrusion [Not Recovered/Not Resolved]
